FAERS Safety Report 5324124-X (Version None)
Quarter: 2007Q2

REPORT INFORMATION
  Report Type: 
  Country: None (occurrence: None)
  Receive Date: 20070514
  Receipt Date: 20060731
  Transmission Date: 20071010
  Serious: No
  Sender: FDA-Public Use
  Company Number: A0614166A

PATIENT
  Age: 37 Year
  Sex: Female

DRUGS (2)
  1. RELAFEN [Suspect]
     Indication: INFLAMMATORY PAIN
     Route: 048
     Dates: start: 20050701, end: 20060601
  2. PROTONIX [Concomitant]

REACTIONS (10)
  - BACK DISORDER [None]
  - BALANCE DISORDER [None]
  - DIZZINESS [None]
  - DRUG INEFFECTIVE [None]
  - DYSKINESIA [None]
  - DYSPEPSIA [None]
  - FALL [None]
  - GAIT DISTURBANCE [None]
  - ILL-DEFINED DISORDER [None]
  - MOUTH ULCERATION [None]
